FAERS Safety Report 10748282 (Version 2)
Quarter: 2015Q2

REPORT INFORMATION
  Report Type: Spontaneous
  Country: US (occurrence: None)
  Receive Date: 20150120
  Receipt Date: 20150420
  Transmission Date: 20150821
  Serious: No
  Sender: FDA-Public Use
  Company Number: AEGR001005

PATIENT
  Age: 21 Year
  Sex: Female
  Weight: 54 kg

DRUGS (7)
  1. OMEGA 3 6 9 (OMEGA 9 FATTY ACIDS, OMEGA-3 FATTY ACIDS, OMEGA-6 FATTY ACIDS)ACIDS [Concomitant]
  2. ZETIA [Concomitant]
     Active Substance: EZETIMIBE
  3. VESTURA (DROSPIRENONE W/ETHINYLESTRADOIL) [Concomitant]
  4. ECOTRIN [Concomitant]
     Active Substance: ASPIRIN
  5. VITAMIN E (TOCOPHERYL ACETATE) [Concomitant]
  6. JUXTAPID [Suspect]
     Active Substance: LOMITAPIDE MESYLATE
     Indication: TYPE IIA HYPERLIPIDAEMIA
     Dates: start: 20130103
  7. CRESTER (ROSUVASTATIN CALCIUM) [Concomitant]

REACTIONS (1)
  - Low density lipoprotein increased [None]
